FAERS Safety Report 19885756 (Version 4)
Quarter: 2022Q1

REPORT INFORMATION
  Report Type: Spontaneous
  Country: US (occurrence: None)
  Receive Date: 20210927
  Receipt Date: 20220325
  Transmission Date: 20220423
  Serious: Yes (Life-Threatening, Hospitalization, Other)
  Sender: FDA-Public Use
  Company Number: US-HIKMA PHARMACEUTICALS USA INC.-US-H14001-21-04052

PATIENT
  Age: 32 Year
  Sex: Male
  Weight: 74.5 kg

DRUGS (26)
  1. PREDNISONE [Suspect]
     Active Substance: PREDNISONE
     Indication: Chronic graft versus host disease
     Route: 048
     Dates: start: 20210828
  2. PREDNISONE [Suspect]
     Active Substance: PREDNISONE
     Route: 048
     Dates: start: 20210928
  3. ITACITINIB [Suspect]
     Active Substance: ITACITINIB
     Indication: Chronic graft versus host disease
     Route: 048
     Dates: start: 20210827, end: 20210902
  4. ITACITINIB [Suspect]
     Active Substance: ITACITINIB
     Route: 048
     Dates: start: 20210908, end: 20210916
  5. ITACITINIB [Suspect]
     Active Substance: ITACITINIB
     Route: 048
     Dates: start: 20210922
  6. TACROLIMUS [Suspect]
     Active Substance: TACROLIMUS
     Indication: Product used for unknown indication
     Dosage: UNKNOWN
     Route: 065
     Dates: start: 20210825, end: 20210905
  7. TACROLIMUS [Suspect]
     Active Substance: TACROLIMUS
     Dosage: UNKNOWN
     Route: 065
     Dates: start: 20210918
  8. VORICONAZOLE [Suspect]
     Active Substance: VORICONAZOLE
     Indication: Product used for unknown indication
     Dosage: UNKNOWN
     Route: 065
     Dates: start: 20210928, end: 20211005
  9. XARELTO [Suspect]
     Active Substance: RIVAROXABAN
     Indication: Product used for unknown indication
     Dosage: UNKNOWN
     Route: 065
     Dates: start: 20210630
  10. POSACONAZOLE [Concomitant]
     Active Substance: POSACONAZOLE
     Indication: Product used for unknown indication
     Dosage: UNKNOWN
     Route: 065
     Dates: start: 202012
  11. VITAMIN K [Concomitant]
     Active Substance: PHYTONADIONE
     Indication: International normalised ratio increased
     Dosage: UNKNOWN
     Route: 065
     Dates: start: 20210830, end: 20210830
  12. AUGMENTIN [Concomitant]
     Active Substance: AMOXICILLIN\CLAVULANATE POTASSIUM
     Indication: Sialoadenitis
     Dosage: UNKNOWN
     Route: 065
     Dates: start: 20210830, end: 20210902
  13. AUGMENTIN [Concomitant]
     Active Substance: AMOXICILLIN\CLAVULANATE POTASSIUM
     Indication: Symptomatic treatment
     Dosage: UNKNOWN
     Route: 048
     Dates: start: 20210924, end: 20211006
  14. ZOSYN [Concomitant]
     Active Substance: PIPERACILLIN SODIUM\TAZOBACTAM SODIUM
     Indication: Sialoadenitis
     Dosage: UNKNOWN
     Route: 065
     Dates: start: 20210902, end: 20210903
  15. ZOSYN [Concomitant]
     Active Substance: PIPERACILLIN SODIUM\TAZOBACTAM SODIUM
     Indication: Symptomatic treatment
     Dosage: UNKNOWN
     Route: 042
     Dates: start: 20210914, end: 20210924
  16. ZOSYN [Concomitant]
     Active Substance: PIPERACILLIN SODIUM\TAZOBACTAM SODIUM
     Indication: Prophylaxis
     Dosage: UNKNOWN
     Route: 042
     Dates: start: 20211005, end: 20211007
  17. TRIAMCINOLONE [Concomitant]
     Active Substance: TRIAMCINOLONE
     Indication: Product used for unknown indication
     Dosage: UNKNOWN
     Route: 065
     Dates: start: 202108
  18. OXYCODONE [Concomitant]
     Active Substance: OXYCODONE
     Indication: Product used for unknown indication
     Dosage: UNKNOWN
     Route: 065
     Dates: start: 201905
  19. OXYCODONE [Concomitant]
     Active Substance: OXYCODONE
     Dosage: UNKNOWN
     Route: 048
     Dates: start: 20210902
  20. SODIUM CHLORIDE [Concomitant]
     Active Substance: SODIUM CHLORIDE
     Indication: Product used for unknown indication
     Route: 042
     Dates: start: 20210902, end: 20210902
  21. ONDANSETRON [Concomitant]
     Active Substance: ONDANSETRON
     Indication: Product used for unknown indication
     Dosage: UNKNOWN
     Route: 048
     Dates: start: 20210902
  22. CEFEPIME [Concomitant]
     Active Substance: CEFEPIME HYDROCHLORIDE
     Indication: Symptomatic treatment
     Dosage: UNKNOWN
     Route: 042
     Dates: start: 20210914
  23. HYDROMORPHONE [Concomitant]
     Active Substance: HYDROMORPHONE
     Indication: Symptomatic treatment
     Dosage: UNKNOWN
     Route: 042
     Dates: start: 20210914
  24. HYDROMORPHONE [Concomitant]
     Active Substance: HYDROMORPHONE
     Dosage: UNKNOWN
     Route: 065
     Dates: start: 20210915
  25. CEFTRIAXONE [Concomitant]
     Active Substance: CEFTRIAXONE
     Indication: Symptomatic treatment
     Dosage: UNKNOWN
     Route: 042
     Dates: start: 20210924, end: 20211005
  26. CASPOFUNGIN [Concomitant]
     Active Substance: CASPOFUNGIN
     Indication: Pneumonia
     Dosage: UNKNOWN
     Route: 042
     Dates: start: 20210928

REACTIONS (19)
  - Diarrhoea [Recovered/Resolved]
  - Pain in extremity [Recovered/Resolved]
  - Activated partial thromboplastin time prolonged [Recovered/Resolved]
  - International normalised ratio increased [Recovered/Resolved]
  - White blood cell count increased [Unknown]
  - Nausea [Unknown]
  - Sialoadenitis [Recovered/Resolved]
  - Bacterial infection [Recovered/Resolved]
  - Abdominal pain [Recovered/Resolved]
  - Myositis [Recovered/Resolved]
  - Hypomagnesaemia [Recovered/Resolved]
  - Pneumonia [Recovered/Resolved]
  - Anaemia [Unknown]
  - Platelet count decreased [Unknown]
  - Aphasia [Unknown]
  - Confusional state [Recovered/Resolved]
  - White blood cell count decreased [Unknown]
  - Neutrophil count decreased [Unknown]
  - Bacteraemia [Recovered/Resolved]

NARRATIVE: CASE EVENT DATE: 20210830
